FAERS Safety Report 4416119-5 (Version None)
Quarter: 2004Q3

REPORT INFORMATION
  Report Type: 
  Country: None (occurrence: None)
  Receive Date: 20040730
  Receipt Date: 20040714
  Transmission Date: 20050211
  Serious: Yes (Death)
  Sender: FDA-Public Use
  Company Number: 702150

PATIENT
  Age: 69 Year
  Sex: Female

DRUGS (1)
  1. AMEVIVE [Suspect]
     Indication: PSORIASIS
     Dosage: 15 MG  IM
     Route: 030
     Dates: start: 20031111, end: 20040223

REACTIONS (2)
  - FEAR [None]
  - TREATMENT NONCOMPLIANCE [None]
